FAERS Safety Report 16835154 (Version 3)
Quarter: 2020Q1

REPORT INFORMATION
  Report Type: Spontaneous
  Country: US (occurrence: US)
  Receive Date: 20190920
  Receipt Date: 20200214
  Transmission Date: 20200409
  Serious: No
  Sender: FDA-Public Use
  Company Number: US-SA-2019SA258633

PATIENT
  Age: 20 Year
  Sex: Male

DRUGS (2)
  1. DUPIXENT [Suspect]
     Active Substance: DUPILUMAB
     Indication: DERMATITIS ATOPIC
     Dosage: 300 MG, QOW
     Route: 058
     Dates: start: 201905
  2. DUPIXENT [Suspect]
     Active Substance: DUPILUMAB
     Dosage: 300 MG, QOW
     Route: 058
     Dates: start: 201905

REACTIONS (4)
  - Periorbital swelling [Not Recovered/Not Resolved]
  - Arthralgia [Unknown]
  - Product dose omission [Unknown]
  - Conjunctivitis [Recovered/Resolved]

NARRATIVE: CASE EVENT DATE: 20190904
